FAERS Safety Report 23188020 (Version 1)
Quarter: 2023Q4

REPORT INFORMATION
  Report Type: Spontaneous
  Country: US (occurrence: US)
  Receive Date: 20231115
  Receipt Date: 20231115
  Transmission Date: 20240109
  Serious: No
  Sender: FDA-Public Use
  Company Number: US-PFIZER INC-PV202300182039

PATIENT
  Sex: Female

DRUGS (5)
  1. XELJANZ [Suspect]
     Active Substance: TOFACITINIB CITRATE
     Dosage: UNK
  2. RITUXAN [Concomitant]
     Active Substance: RITUXIMAB
  3. ACTEMRA [Concomitant]
     Active Substance: TOCILIZUMAB
  4. METHOTREXATE [Concomitant]
     Active Substance: METHOTREXATE
  5. RINVOQ [Concomitant]
     Active Substance: UPADACITINIB

REACTIONS (1)
  - Drug ineffective [Unknown]
